FAERS Safety Report 9148295 (Version 1)
Quarter: 2013Q1

REPORT INFORMATION
  Report Type: Spontaneous
  Country: US (occurrence: None)
  Receive Date: 20130228
  Receipt Date: 20130228
  Transmission Date: 20140127
  Serious: Yes (Other)
  Sender: FDA-Public Use
  Company Number: None

PATIENT
  Age: 72 Year
  Sex: Female

DRUGS (1)
  1. PROLIA [Suspect]
     Dosage: 60 MG Q 6 MONTHS SQ
     Dates: start: 20130118

REACTIONS (2)
  - Loose tooth [None]
  - Tooth disorder [None]
